FAERS Safety Report 10045941 (Version 1)
Quarter: 2014Q1

REPORT INFORMATION
  Report Type: Spontaneous
  Country: US (occurrence: US)
  Receive Date: 20140330
  Receipt Date: 20140330
  Transmission Date: 20141002
  Serious: No
  Sender: FDA-Public Use
  Company Number: US-009507513-1403USA012493

PATIENT
  Age: 51 Year
  Sex: Male

DRUGS (1)
  1. ISENTRESS [Suspect]
     Indication: INFECTION
     Dosage: 1 DF, BID
     Route: 048

REACTIONS (2)
  - Haematuria [Not Recovered/Not Resolved]
  - Nephrolithiasis [Not Recovered/Not Resolved]
